FAERS Safety Report 23357730 (Version 3)
Quarter: 2024Q1

REPORT INFORMATION
  Report Type: Report from Study
  Country: US (occurrence: US)
  Receive Date: 20240102
  Receipt Date: 20240226
  Transmission Date: 20240409
  Serious: No
  Sender: FDA-Public Use
  Company Number: US-AstraZeneca-CH-00534896A

PATIENT
  Sex: Female

DRUGS (2)
  1. ULTOMIRIS [Suspect]
     Active Substance: RAVULIZUMAB-CWVZ
     Indication: Product used for unknown indication
     Dosage: 3300 MILLIGRAM
     Route: 065
  2. PREDNISONE [Concomitant]
     Active Substance: PREDNISONE
     Indication: Product used for unknown indication
     Dosage: UNK
     Route: 065

REACTIONS (10)
  - Diplopia [Recovering/Resolving]
  - Thermal burn [Unknown]
  - Trichorrhexis [Unknown]
  - Nasopharyngitis [Unknown]
  - Asthenia [Unknown]
  - Muscular weakness [Unknown]
  - Muscle strain [Unknown]
  - Feeling abnormal [Unknown]
  - Drug ineffective [Unknown]
  - Head discomfort [Unknown]
